FAERS Safety Report 19351152 (Version 1)
Quarter: 2021Q2

REPORT INFORMATION
  Report Type: Spontaneous
  Country: FR (occurrence: FR)
  Receive Date: 20210531
  Receipt Date: 20210531
  Transmission Date: 20210717
  Serious: Yes (Hospitalization)
  Sender: FDA-Public Use
  Company Number: FR-ACCORD-226505

PATIENT
  Age: 57 Year
  Sex: Female
  Weight: 59.5 kg

DRUGS (10)
  1. FUROSEMIDE. [Suspect]
     Active Substance: FUROSEMIDE
     Indication: STRESS CARDIOMYOPATHY
     Route: 048
     Dates: start: 20201114
  2. DAFALGAN [Concomitant]
     Active Substance: ACETAMINOPHEN
  3. ALPRAZOLAM. [Concomitant]
     Active Substance: ALPRAZOLAM
  4. RAMIPRIL. [Suspect]
     Active Substance: RAMIPRIL
     Indication: STRESS CARDIOMYOPATHY
     Route: 048
     Dates: start: 20201114
  5. NUCTALON [Concomitant]
     Active Substance: ESTAZOLAM
  6. DAFALGAN [Suspect]
     Active Substance: ACETAMINOPHEN
     Indication: PAIN
     Route: 048
     Dates: end: 20210316
  7. EPLERENONE. [Suspect]
     Active Substance: EPLERENONE
     Indication: STRESS CARDIOMYOPATHY
     Route: 048
     Dates: start: 20201114
  8. CARDENSIEL [Suspect]
     Active Substance: BISOPROLOL FUMARATE
     Indication: STRESS CARDIOMYOPATHY
     Dosage: 1.25 MG FILM?COATED TABLETS
     Route: 048
     Dates: start: 20201114
  9. KARDEGIC [Suspect]
     Active Substance: ASPIRIN DL-LYSINE
     Indication: STRESS CARDIOMYOPATHY
     Dosage: 75 MG POWDER FOR ORAL SOLUTION IN SACHET?DOSE
     Route: 048
     Dates: start: 20201114
  10. SEROPLEX [Concomitant]
     Active Substance: ESCITALOPRAM OXALATE
     Dosage: 10 MG, SCORED FILM?COATED TABLET

REACTIONS (1)
  - Pancreatitis acute [Recovering/Resolving]

NARRATIVE: CASE EVENT DATE: 20210315
